FAERS Safety Report 6816730-8 (Version None)
Quarter: 2010Q3

REPORT INFORMATION
  Report Type: 
  Country: None (occurrence: None)
  Receive Date: 20100706
  Receipt Date: 20100622
  Transmission Date: 20110219
  Serious: Yes (Hospitalization, Other)
  Sender: FDA-Public Use
  Company Number: PHHY2010CA37729

PATIENT
  Sex: Male

DRUGS (8)
  1. CLOZARIL [Suspect]
     Dosage: UNK
     Dates: start: 20100222, end: 20100525
  2. KEMADRIN [Concomitant]
     Dosage: 5 MG, BID
  3. CRESTOR [Concomitant]
     Dosage: 20 MG 2 TABS QHS
  4. ATASOL [Concomitant]
     Dosage: 325 MG 3 TABS
  5. XANAX [Concomitant]
     Dosage: 10 MG
  6. LOXAPAC [Concomitant]
     Dosage: 1 MG TID PRN
  7. COLACE [Concomitant]
  8. SENOKOT [Concomitant]

REACTIONS (1)
  - PANCREATITIS ACUTE [None]
